FAERS Safety Report 6828541-8 (Version None)
Quarter: 2010Q3

REPORT INFORMATION
  Report Type: 
  Country: None (occurrence: None)
  Receive Date: 20100709
  Receipt Date: 20070213
  Transmission Date: 20110219
  Serious: No
  Sender: FDA-Public Use
  Company Number: US-PFIZER INC-2007012190

PATIENT
  Sex: Male
  Weight: 101.6 kg

DRUGS (3)
  1. CHANTIX [Suspect]
     Indication: SMOKING CESSATION THERAPY
     Dosage: BID: EVERY DAY
     Dates: start: 20070201
  2. SIMVASTATIN [Concomitant]
  3. LISINOPRIL [Concomitant]

REACTIONS (3)
  - GASTROENTERITIS VIRAL [None]
  - NAUSEA [None]
  - VERTIGO [None]
